FAERS Safety Report 23655362 (Version 1)
Quarter: 2024Q1

REPORT INFORMATION
  Report Type: Report from Study
  Country: US (occurrence: US)
  Receive Date: 20240320
  Receipt Date: 20240320
  Transmission Date: 20240410
  Serious: Yes (Other)
  Sender: FDA-Public Use
  Company Number: US-ALXN-202403GLO000895US

PATIENT
  Age: 11 Year
  Sex: Female
  Weight: 51 kg

DRUGS (2)
  1. STRENSIQ [Suspect]
     Active Substance: ASFOTASE ALFA
     Indication: Hypophosphatasia
     Dosage: 2 MILLIGRAM/KILOGRAM THREE TIMES A WEEK, (40MG/ML)
     Route: 058
     Dates: start: 20140602, end: 20160607
  2. STRENSIQ [Suspect]
     Active Substance: ASFOTASE ALFA
     Dosage: 1 MILLIGRAM/KILOGRAM, SIX TIMES/WEEK, (80MG/0.8ML)
     Route: 058
     Dates: start: 20220225

REACTIONS (1)
  - Injection site hypertrophy [Not Recovered/Not Resolved]

NARRATIVE: CASE EVENT DATE: 20240215
